FAERS Safety Report 5518265-1 (Version None)
Quarter: 2007Q4

REPORT INFORMATION
  Report Type: 
  Country: None (occurrence: None)
  Receive Date: 20071115
  Receipt Date: 20071109
  Transmission Date: 20080405
  Serious: Yes (Hospitalization)
  Sender: FDA-Public Use
  Company Number: B0493510A

PATIENT
  Age: 35 Year
  Sex: Male

DRUGS (10)
  1. COMBIVIR [Suspect]
     Indication: HIV INFECTION
     Route: 048
     Dates: start: 20030908
  2. TENOFOVIR DISOPROXIL FUMARATE [Suspect]
     Indication: HIV INFECTION
  3. COTRIM [Suspect]
     Indication: PROPHYLAXIS
     Dosage: 960MG PER DAY
     Dates: start: 20030908
  4. FLUCONAZOLE [Concomitant]
  5. RIFAMPIN [Concomitant]
  6. ETHAMBUTOL HYDROCHLORIDE [Concomitant]
  7. TRIMAZIDE [Concomitant]
  8. PYRAZINAMIDE [Concomitant]
  9. STAVUDINE [Concomitant]
     Dosage: 30MG TWICE PER DAY
     Dates: start: 20071023
  10. LAMIVUDINE [Concomitant]
     Dosage: 150MG TWICE PER DAY
     Dates: start: 20071023

REACTIONS (1)
  - PANCYTOPENIA [None]
